FAERS Safety Report 9330627 (Version 2)
Quarter: 2013Q3

REPORT INFORMATION
  Report Type: Spontaneous
  Country: FR (occurrence: FR)
  Receive Date: 20130605
  Receipt Date: 20130816
  Transmission Date: 20140515
  Serious: Yes (Hospitalization, Other)
  Sender: FDA-Public Use
  Company Number: FR-009507513-1305FRA016456

PATIENT
  Age: 59 Year
  Sex: Male

DRUGS (5)
  1. DIPROSONE [Suspect]
     Dosage: UNK
     Dates: start: 201011
  2. METHOTREXATE [Suspect]
     Indication: PSORIASIS
     Dosage: UNK
     Dates: start: 201111
  3. SPECIAFOLDINE [Suspect]
     Dosage: UNK
     Route: 048
     Dates: start: 201111
  4. TAHOR [Suspect]
     Dosage: UNK
     Route: 048
  5. ODRIK [Suspect]
     Dosage: UNK

REACTIONS (2)
  - Squamous cell carcinoma [Recovered/Resolved]
  - Hyperplasia [Recovered/Resolved]
